FAERS Safety Report 18194767 (Version 1)
Quarter: 2020Q3

REPORT INFORMATION
  Report Type: Spontaneous
  Country: US (occurrence: US)
  Receive Date: 20200825
  Receipt Date: 20200825
  Transmission Date: 20201103
  Serious: Yes (Other)
  Sender: FDA-Public Use
  Company Number: US-ASTRAZENECA-2020SF05450

PATIENT
  Age: 49 Year
  Sex: Female

DRUGS (2)
  1. FARXIGA [Suspect]
     Active Substance: DAPAGLIFLOZIN PROPANEDIOL
     Dosage: UNKNOWN
     Route: 048
  2. BASIL AND BOLIS INSULIN [Concomitant]

REACTIONS (4)
  - Diabetic ketoacidosis [Unknown]
  - Fournier^s gangrene [Unknown]
  - Diabetes mellitus [Not Recovered/Not Resolved]
  - Subcutaneous abscess [Unknown]
